FAERS Safety Report 15779255 (Version 12)
Quarter: 2019Q2

REPORT INFORMATION
  Report Type: Spontaneous
  Country: US (occurrence: US)
  Receive Date: 20190101
  Receipt Date: 20190523
  Transmission Date: 20190711
  Serious: Yes (Death, Hospitalization, Other)
  Sender: FDA-Public Use
  Company Number: US-PFIZER INC-2018440342

PATIENT
  Age: 66 Year
  Sex: Female
  Weight: 136 kg

DRUGS (6)
  1. PROKINE [SARGRAMOSTIM] [Concomitant]
     Dosage: UNK
  2. CLINDAMYCIN. [Concomitant]
     Active Substance: CLINDAMYCIN
     Dosage: UNK
  3. PREDNISONE. [Concomitant]
     Active Substance: PREDNISONE
     Dosage: UNK
  4. APRISO [Concomitant]
     Active Substance: MESALAMINE
     Dosage: 4 DF, DAILY (1 AT NIGHT AND 3 IN THE MORNING)
  5. TORISEL [Suspect]
     Active Substance: TEMSIROLIMUS
     Indication: METASTATIC UTERINE CANCER
     Dosage: 25 MG, UNK
     Dates: start: 201812
  6. NEUPOGEN [Concomitant]
     Active Substance: FILGRASTIM
     Dosage: UNK

REACTIONS (41)
  - Asthenia [Unknown]
  - Hip fracture [Unknown]
  - Full blood count decreased [Unknown]
  - Malaise [Unknown]
  - Dyspnoea [Unknown]
  - Muscle spasms [Not Recovered/Not Resolved]
  - Blood blister [Unknown]
  - Decreased appetite [Unknown]
  - Diabetes mellitus [Unknown]
  - Platelet count decreased [Unknown]
  - Gait disturbance [Unknown]
  - Fall [Unknown]
  - Oxygen saturation decreased [Unknown]
  - Off label use [Unknown]
  - Pain [Not Recovered/Not Resolved]
  - Choking [Unknown]
  - Visual impairment [Unknown]
  - Insomnia [Unknown]
  - Alopecia [Unknown]
  - Nasopharyngitis [Not Recovered/Not Resolved]
  - Dry mouth [Unknown]
  - Contusion [Unknown]
  - Nausea [Unknown]
  - Blood urine present [Unknown]
  - Dysphagia [Unknown]
  - Death [Fatal]
  - Polyuria [Unknown]
  - Dry skin [Unknown]
  - Viral infection [Not Recovered/Not Resolved]
  - Oral disorder [Unknown]
  - Neoplasm progression [Unknown]
  - Haematuria [Unknown]
  - Product use in unapproved indication [Unknown]
  - Vulval abscess [Unknown]
  - Haemorrhage [Unknown]
  - Aphthous ulcer [Unknown]
  - Skin atrophy [Unknown]
  - Incontinence [Unknown]
  - Diverticulitis [Not Recovered/Not Resolved]
  - Colitis [Not Recovered/Not Resolved]
  - Pain in extremity [Unknown]

NARRATIVE: CASE EVENT DATE: 201812
